FAERS Safety Report 24214569 (Version 1)
Quarter: 2024Q3

REPORT INFORMATION
  Report Type: Spontaneous
  Country: US (occurrence: US)
  Receive Date: 20240815
  Receipt Date: 20240815
  Transmission Date: 20241017
  Serious: No
  Sender: TRAVERE THERAPEUTICS
  Company Number: US-TRAVERE-2024TVT00756

PATIENT
  Sex: Male

DRUGS (4)
  1. FILSPARI [Suspect]
     Active Substance: SPARSENTAN
     Indication: IgA nephropathy
     Route: 048
     Dates: start: 202304
  2. FILSPARI [Suspect]
     Active Substance: SPARSENTAN
     Route: 048
     Dates: end: 20240717
  3. VITAMIN D [Concomitant]
     Active Substance: VITAMIN D NOS
  4. OMEGA-3 ACIDS [Concomitant]
     Active Substance: OMEGA-3 FATTY ACIDS

REACTIONS (1)
  - Hepatic enzyme increased [Unknown]
